FAERS Safety Report 4289850-2 (Version None)
Quarter: 2004Q1

REPORT INFORMATION
  Report Type: 
  Country: None (occurrence: None)
  Receive Date: 20040206
  Receipt Date: 20040202
  Transmission Date: 20041129
  Serious: Yes (Hospitalization)
  Sender: FDA-Public Use
  Company Number: 200410355GDS

PATIENT
  Age: 80 Year
  Sex: Female

DRUGS (6)
  1. ASPIRIN CARDIO (ACETYLSALICYLIC ACID) [Suspect]
     Dosage: 100 MG, QD, ORAL
     Route: 048
     Dates: end: 20040115
  2. ACENOCOUMAROL [Suspect]
     Dosage: PRN, ORAL
     Route: 048
     Dates: end: 20040115
  3. GINKGO BILOBA [Suspect]
     Dosage: 60 MG, BID, ORAL
     Route: 048
     Dates: end: 20040115
  4. CITALOPRAM [Suspect]
     Dosage: 20 MG, TOTAL DAILY, ORAL
     Route: 048
     Dates: end: 20040115
  5. IRBESARTAN [Concomitant]
  6. DIGOXIN [Concomitant]

REACTIONS (4)
  - ANAEMIA [None]
  - DRUG INTERACTION POTENTIATION [None]
  - HAEMATOMA [None]
  - PROTHROMBIN TIME PROLONGED [None]
